FAERS Safety Report 4806506-5 (Version None)
Quarter: 2005Q4

REPORT INFORMATION
  Report Type: 
  Country: None (occurrence: None)
  Receive Date: 20051021
  Receipt Date: 20050728
  Transmission Date: 20060501
  Serious: Yes (Other)
  Sender: FDA-Public Use
  Company Number: PHBS2005BE11039

PATIENT
  Sex: Female

DRUGS (8)
  1. ZOMETA [Suspect]
     Indication: MULTIPLE MYELOMA
     Dosage: UNK, QMO
     Route: 042
     Dates: end: 20050601
  2. THALIDOMIDE [Concomitant]
     Dosage: 2 TABLETS/D
     Route: 065
     Dates: start: 20010801, end: 20040401
  3. AREDIA [Suspect]
     Indication: MULTIPLE MYELOMA
     Route: 042
     Dates: start: 19980701
  4. CYCLOPHOSPHAMIDE W/VINCRISTINE/PREDNISONE [Concomitant]
     Route: 065
     Dates: start: 19991101
  5. MELPHALAN [Concomitant]
     Route: 065
     Dates: start: 19991101
  6. ALKERAN [Concomitant]
     Dosage: 6 CYCLES
     Route: 065
     Dates: start: 20000703
  7. MEDROL [Concomitant]
     Dosage: 6 CYCLES
     Route: 065
     Dates: start: 20000703
  8. EPREX [Concomitant]
     Dosage: UNK, UNK
     Route: 065
     Dates: start: 20010101, end: 20010301

REACTIONS (8)
  - ANAEMIA [None]
  - BONE DISORDER [None]
  - CONFUSIONAL STATE [None]
  - HYPERTENSIVE CRISIS [None]
  - JAW DISORDER [None]
  - LEUKOPENIA [None]
  - MONOCLONAL IMMUNOGLOBULIN PRESENT [None]
  - OSTEONECROSIS [None]
